FAERS Safety Report 23517294 (Version 1)
Quarter: 2024Q1

REPORT INFORMATION
  Report Type: 
  Country: None (occurrence: None)
  Receive Date: 20240213
  Receipt Date: 20240213
  Transmission Date: 20240410
  Serious: No
  Sender: FDA-Public Use
  Company Number: CN-ROCHE-3256828

PATIENT
  Weight: 80.75 kg

DRUGS (62)
  1. OBINUTUZUMAB [Suspect]
     Active Substance: OBINUTUZUMAB
     Dosage: START DATE OF MOST RECENT DOSE OF STUDY DRUG PRIOR TO AE/SAE 15/SEP/2022 3:03 PM AND ENDED AT 3.33 P
     Dates: start: 20220321
  2. NIFEDIPINE [Concomitant]
     Active Substance: NIFEDIPINE
     Dates: start: 20201203, end: 20230118
  3. AROTINOLOL HYDROCHLORIDE [Concomitant]
     Active Substance: AROTINOLOL HYDROCHLORIDE
     Dates: start: 20201015, end: 20230118
  4. TERAZOSIN HYDROCHLORIDE [Concomitant]
     Active Substance: TERAZOSIN HYDROCHLORIDE
     Dates: start: 20210506, end: 20230102
  5. ERYTHROPOIETIN [Concomitant]
     Active Substance: ERYTHROPOIETIN
     Dates: start: 20210422, end: 20230103
  6. ATORVASTATIN CALCIUM [Concomitant]
     Active Substance: ATORVASTATIN CALCIUM
     Dates: start: 20200604, end: 20230118
  7. FEBUXOSTAT [Concomitant]
     Active Substance: FEBUXOSTAT
     Dates: start: 20220106, end: 20230118
  8. CALCIUM CARBONATE\CHOLECALCIFEROL [Concomitant]
     Active Substance: CALCIUM CARBONATE\CHOLECALCIFEROL
     Dates: start: 20200615, end: 20230118
  9. GABAPENTIN [Concomitant]
     Active Substance: GABAPENTIN
     Dates: start: 1992, end: 20230118
  10. CARBAMAZEPINE [Concomitant]
     Active Substance: CARBAMAZEPINE
     Dates: start: 1992, end: 20230102
  11. CARBAMAZEPINE [Concomitant]
     Active Substance: CARBAMAZEPINE
     Dates: start: 1992, end: 20230116
  12. CARBAMAZEPINE [Concomitant]
     Active Substance: CARBAMAZEPINE
     Dates: start: 20230103, end: 20230116
  13. ICHTHAMMOL [Concomitant]
     Active Substance: ICHTHAMMOL
     Dates: start: 20220502, end: 202212
  14. MEROPENEM [Concomitant]
     Active Substance: MEROPENEM
     Dates: start: 20230103, end: 20230106
  15. MEROPENEM [Concomitant]
     Active Substance: MEROPENEM
     Dates: start: 20230108, end: 20230110
  16. AMBROXOL HYDROCHLORIDE [Concomitant]
     Active Substance: AMBROXOL HYDROCHLORIDE
     Dates: start: 20230103, end: 20230118
  17. AMBROXOL HYDROCHLORIDE [Concomitant]
     Active Substance: AMBROXOL HYDROCHLORIDE
     Dates: start: 20230118, end: 20230207
  18. SULFAMETHOXAZOLE [Concomitant]
     Active Substance: SULFAMETHOXAZOLE
     Dosage: COMPOUND SULFAMETHOXAZOLE GRANULES
     Dates: start: 20230103, end: 20230113
  19. SULFAMETHOXAZOLE [Concomitant]
     Active Substance: SULFAMETHOXAZOLE
     Dates: start: 20230113, end: 20230118
  20. METHYLPREDNISOLONE SODIUM SUCCINATE [Concomitant]
     Active Substance: METHYLPREDNISOLONE SODIUM SUCCINATE
     Dates: start: 20230104, end: 20230108
  21. THYMALFASIN [Concomitant]
     Active Substance: THYMALFASIN
     Dates: start: 20230104, end: 20230104
  22. THYMALFASIN [Concomitant]
     Active Substance: THYMALFASIN
     Dates: start: 20230119, end: 20230124
  23. ENOXAPARIN SODIUM [Concomitant]
     Active Substance: ENOXAPARIN SODIUM
     Dates: start: 20230104, end: 20230104
  24. ENOXAPARIN SODIUM [Concomitant]
     Active Substance: ENOXAPARIN SODIUM
     Dates: start: 20230106, end: 20230118
  25. ENOXAPARIN SODIUM [Concomitant]
     Active Substance: ENOXAPARIN SODIUM
     Dates: start: 20230119, end: 20230131
  26. LANSOPRAZOLE [Concomitant]
     Active Substance: LANSOPRAZOLE
     Dosage: ENTERIC -COATED TABLET
     Dates: start: 20230104, end: 20230118
  27. VITAMIN D2 [Concomitant]
     Active Substance: ERGOCALCIFEROL
     Dates: start: 20230104, end: 20230118
  28. NADROPARIN CALCIUM [Concomitant]
     Active Substance: NADROPARIN CALCIUM
     Dates: start: 20230104, end: 20230106
  29. THYMOPENTIN [Concomitant]
     Active Substance: THYMOPENTIN
     Dates: start: 20230105, end: 20230118
  30. AVELOX [Concomitant]
     Active Substance: MOXIFLOXACIN HYDROCHLORIDE
     Dates: start: 20230106, end: 20230108
  31. ACETYLCYSTEINE [Concomitant]
     Active Substance: ACETYLCYSTEINE
     Dates: start: 20230107, end: 20230207
  32. HYDROCORTISONE [Concomitant]
     Active Substance: HYDROCORTISONE
     Dates: start: 20230107, end: 20230107
  33. VANCOMYCIN HYDROCHLORIDE [Concomitant]
     Active Substance: VANCOMYCIN HYDROCHLORIDE
     Dosage: 50 U
     Dates: start: 20230108, end: 20230110
  34. VORICONAZOLE [Concomitant]
     Active Substance: VORICONAZOLE
     Dates: start: 20230108, end: 20230118
  35. METHYLPREDNISOLONE SODIUM SUCCINATE [Concomitant]
     Active Substance: METHYLPREDNISOLONE SODIUM SUCCINATE
     Dates: start: 20230108, end: 20230122
  36. METHYLPREDNISOLONE SODIUM SUCCINATE [Concomitant]
     Active Substance: METHYLPREDNISOLONE SODIUM SUCCINATE
     Dates: start: 20230125, end: 20230129
  37. METHYLPREDNISOLONE SODIUM SUCCINATE [Concomitant]
     Active Substance: METHYLPREDNISOLONE SODIUM SUCCINATE
     Dates: start: 20230122, end: 20230125
  38. ROXADUSTAT [Concomitant]
     Active Substance: ROXADUSTAT
     Dates: start: 20230109, end: 20230110
  39. ROXADUSTAT [Concomitant]
     Active Substance: ROXADUSTAT
     Dates: start: 20230110, end: 20230118
  40. BARICITINIB [Concomitant]
     Active Substance: BARICITINIB
     Dates: start: 20230110, end: 20230126
  41. MOXIFLOXACIN HYDROCHLORIDE [Concomitant]
     Active Substance: MOXIFLOXACIN HYDROCHLORIDE\MOXIFLOXACIN HYDROCHLORIDE MONOHYDRATE
     Dosage: 1 TABLET
     Dates: start: 20221228, end: 20230103
  42. MOXIFLOXACIN HYDROCHLORIDE [Concomitant]
     Active Substance: MOXIFLOXACIN HYDROCHLORIDE\MOXIFLOXACIN HYDROCHLORIDE MONOHYDRATE
     Dates: start: 20230111, end: 20230128
  43. TERBUTALINE SULFATE [Concomitant]
     Active Substance: TERBUTALINE SULFATE
     Dates: start: 20230113, end: 20230115
  44. BUDESONIDE [Concomitant]
     Active Substance: BUDESONIDE
     Dates: start: 20230113, end: 20230115
  45. BUDESONIDE [Concomitant]
     Active Substance: BUDESONIDE
     Dates: start: 20230118, end: 20230120
  46. POLYETHYLENE GLYCOL 4000 [Concomitant]
     Active Substance: POLYETHYLENE GLYCOL 4000
     Dates: start: 20230114, end: 20230118
  47. SODIUM BICARBONATE [Concomitant]
     Active Substance: SODIUM BICARBONATE
     Dates: start: 20230114, end: 20230114
  48. GANCICLOVIR [Concomitant]
     Active Substance: GANCICLOVIR
     Dates: start: 20230115, end: 20230118
  49. NIRMATRELVIR\RITONAVIR [Concomitant]
     Active Substance: NIRMATRELVIR\RITONAVIR
     Dosage: 3 TABLET
     Dates: start: 20230116, end: 20230121
  50. NIRMATRELVIR\RITONAVIR [Concomitant]
     Active Substance: NIRMATRELVIR\RITONAVIR
     Dates: start: 20230125, end: 20230131
  51. LEVETIRACETAM [Concomitant]
     Active Substance: LEVETIRACETAM
     Dates: start: 20230116, end: 20230207
  52. MOSAPRIDE CITRATE [Concomitant]
     Active Substance: MOSAPRIDE CITRATE
     Dates: start: 20230118, end: 20230207
  53. ESOMEPRAZOLE SODIUM [Concomitant]
     Active Substance: ESOMEPRAZOLE SODIUM
     Dates: start: 20230118, end: 20230118
  54. LEVALBUTEROL HYDROCHLORIDE [Concomitant]
     Active Substance: LEVALBUTEROL HYDROCHLORIDE
     Dates: start: 20230118, end: 20230120
  55. FUROSEMIDE [Concomitant]
     Active Substance: FUROSEMIDE
     Dates: start: 20230118, end: 20230123
  56. FUROSEMIDE [Concomitant]
     Active Substance: FUROSEMIDE
     Dates: start: 20230205, end: 20230207
  57. FUROSEMIDE [Concomitant]
     Active Substance: FUROSEMIDE
     Dates: start: 20230204, end: 20230205
  58. DOXOFYLLINE [Concomitant]
     Active Substance: DOXOFYLLINE
     Dates: start: 20230118, end: 20230123
  59. CALCIUM GLUCONATE [Concomitant]
     Active Substance: CALCIUM GLUCONATE
     Dates: start: 20230118, end: 20230119
  60. CALCIUM GLUCONATE [Concomitant]
     Active Substance: CALCIUM GLUCONATE
     Dates: start: 20230119, end: 20230122
  61. RITONAVIR [Concomitant]
     Active Substance: RITONAVIR
     Dates: start: 20230118, end: 20230121
  62. RITONAVIR [Concomitant]
     Active Substance: RITONAVIR
     Dates: start: 20230125, end: 20230131

REACTIONS (2)
  - COVID-19 pneumonia [None]
  - Suspected COVID-19 [None]

NARRATIVE: CASE EVENT DATE: 20221221
